FAERS Safety Report 5039105-3 (Version None)
Quarter: 2006Q2

REPORT INFORMATION
  Report Type: 
  Country: None (occurrence: None)
  Receive Date: 20060626
  Receipt Date: 20060608
  Transmission Date: 20061013
  Serious: Yes (Hospitalization, Other)
  Sender: FDA-Public Use
  Company Number: A-CH2006-12473

PATIENT
  Age: 26 Year
  Sex: Female
  Weight: 54.4 kg

DRUGS (5)
  1. BOSENTAN TABLET 62.5 MG US (BOSENTAN) TABLET [Suspect]
     Indication: PULMONARY HYPERTENSION
     Dosage: SEE IMAGE
     Route: 048
     Dates: start: 20040210, end: 20040309
  2. BOSENTAN TABLET 62.5 MG US (BOSENTAN) TABLET [Suspect]
     Indication: PULMONARY HYPERTENSION
     Dosage: SEE IMAGE
     Route: 048
     Dates: start: 20040310, end: 20040327
  3. CIMETIDINE [Concomitant]
  4. FUROSEMIDE [Concomitant]
  5. DIGOXIN [Concomitant]

REACTIONS (3)
  - BLOOD AMYLASE INCREASED [None]
  - CHOLELITHIASIS [None]
  - LIPASE INCREASED [None]
